FAERS Safety Report 7166119-X (Version None)
Quarter: 2010Q4

REPORT INFORMATION
  Report Type: 
  Country: None (occurrence: None)
  Receive Date: 20101216
  Receipt Date: 20101207
  Transmission Date: 20110411
  Serious: Yes (Other)
  Sender: FDA-Public Use
  Company Number: US-JNJFOC-20101203571

PATIENT
  Sex: Male
  Weight: 67.13 kg

DRUGS (3)
  1. SANDOZ FENTANYL TRANSDERMAL SYSTEM [Suspect]
     Indication: RHEUMATOID ARTHRITIS
     Route: 062
  2. METHOTREXATE [Suspect]
     Indication: RHEUMATOID ARTHRITIS
     Route: 048
  3. PREDNISONE [Suspect]
     Indication: RHEUMATOID ARTHRITIS

REACTIONS (8)
  - DRUG INEFFECTIVE [None]
  - HOT FLUSH [None]
  - INADEQUATE ANALGESIA [None]
  - LIGAMENT RUPTURE [None]
  - PRODUCT ADHESION ISSUE [None]
  - PRODUCT QUALITY ISSUE [None]
  - TOBACCO USER [None]
  - WRONG TECHNIQUE IN DRUG USAGE PROCESS [None]
